FAERS Safety Report 9967529 (Version 1)
Quarter: 2014Q1

REPORT INFORMATION
  Report Type: Report from Study
  Country: US (occurrence: US)
  Receive Date: 20140305
  Receipt Date: 20140305
  Transmission Date: 20141002
  Serious: No
  Sender: FDA-Public Use
  Company Number: US-ABBVIE-13P-163-1137888-00

PATIENT
  Age: 57 Year
  Sex: Female

DRUGS (1)
  1. HUMIRA [Suspect]
     Indication: CROHN^S DISEASE
     Dosage: ON AND OFF SINCE START
     Route: 058
     Dates: start: 20091219

REACTIONS (2)
  - Lymphadenopathy [Recovering/Resolving]
  - Malaise [Recovering/Resolving]
